FAERS Safety Report 24408722 (Version 1)
Quarter: 2024Q4

REPORT INFORMATION
  Report Type: Spontaneous
  Country: US (occurrence: US)
  Receive Date: 20241007
  Receipt Date: 20241007
  Transmission Date: 20250115
  Serious: Yes (Other)
  Sender: BAUSCH AND LOMB
  Company Number: US-BAUSCH-BL-2024-014743

PATIENT
  Age: 63 Year
  Sex: Male

DRUGS (15)
  1. ISOPROTERENOL [Suspect]
     Active Substance: ISOPROTERENOL
     Indication: Bradycardia
     Dosage: DRIPS
     Route: 065
  2. ISOPROTERENOL [Suspect]
     Active Substance: ISOPROTERENOL
     Indication: Hypotension
  3. PHENYLEPHRINE [Suspect]
     Active Substance: PHENYLEPHRINE HYDROCHLORIDE
     Indication: Bradycardia
     Route: 065
  4. PHENYLEPHRINE [Suspect]
     Active Substance: PHENYLEPHRINE HYDROCHLORIDE
     Indication: Hypotension
  5. ANGIOTENSIN [Suspect]
     Active Substance: ANGIOTENSIN
     Indication: Bradycardia
     Route: 065
  6. ANGIOTENSIN [Suspect]
     Active Substance: ANGIOTENSIN
     Indication: Hypotension
  7. LOSARTAN [Concomitant]
     Active Substance: LOSARTAN
     Indication: Product used for unknown indication
     Route: 065
  8. METOPROLOL TARTRATE [Concomitant]
     Active Substance: METOPROLOL TARTRATE
     Indication: Product used for unknown indication
     Route: 065
  9. METFORMIN [Concomitant]
     Active Substance: METFORMIN HYDROCHLORIDE
     Indication: Product used for unknown indication
     Route: 065
  10. AMLODIPINE [Concomitant]
     Active Substance: AMLODIPINE BESYLATE
     Indication: Product used for unknown indication
     Route: 065
  11. NOREPINEPHRINE [Concomitant]
     Active Substance: NOREPINEPHRINE\NOREPINEPHRINE BITARTRATE
     Indication: Hypotension
     Route: 065
  12. VASOPRESSIN [Concomitant]
     Active Substance: VASOPRESSIN
     Indication: Hypotension
     Route: 065
  13. EPINEPHRINE [Concomitant]
     Active Substance: EPINEPHRINE
     Indication: Hypotension
     Route: 065
  14. ATROPINE [Concomitant]
     Active Substance: ATROPINE
     Indication: Bradycardia
     Route: 065
  15. CALCIUM GLUCONATE [Concomitant]
     Active Substance: CALCIUM GLUCONATE
     Indication: Bradycardia
     Route: 065

REACTIONS (1)
  - Therapy partial responder [Unknown]
